FAERS Safety Report 8001324-1 (Version None)
Quarter: 2011Q4

REPORT INFORMATION
  Report Type: 
  Country: None (occurrence: None)
  Receive Date: 20111222
  Receipt Date: 20111214
  Transmission Date: 20120403
  Serious: Yes (Other)
  Sender: FDA-Public Use
  Company Number: AR-SANOFI-AVENTIS-2011SA082189

PATIENT
  Age: 78 Year
  Sex: Female

DRUGS (7)
  1. PENTOXIFYLLINE [Suspect]
     Route: 048
     Dates: start: 19910101, end: 20110901
  2. LOSARTAN POTASSIUM [Concomitant]
     Route: 048
  3. ALL OTHER THERAPEUTIC PRODUCTS [Concomitant]
     Indication: ARRHYTHMIA
     Route: 048
  4. ACETAMINOPHEN [Concomitant]
     Indication: PAIN
     Route: 065
     Dates: start: 20110401
  5. FERRUM ^GREEN CROSS^ [Concomitant]
     Route: 048
  6. DIURETICS [Concomitant]
     Route: 048
     Dates: start: 20110401
  7. ACENOCOUMAROL [Concomitant]
     Indication: ARRHYTHMIA
     Route: 048

REACTIONS (2)
  - BENIGN GASTROINTESTINAL NEOPLASM [None]
  - OEDEMA PERIPHERAL [None]
